FAERS Safety Report 9229941 (Version 1)
Quarter: 2013Q2

REPORT INFORMATION
  Report Type: Spontaneous
  Country: US (occurrence: None)
  Receive Date: 20130412
  Receipt Date: 20130412
  Transmission Date: 20140414
  Serious: No
  Sender: FDA-Public Use
  Company Number: None

PATIENT
  Age: 84 Year
  Sex: Male
  Weight: 86.2 kg

DRUGS (1)
  1. PHYTONADIONE [Suspect]
     Indication: COAGULOPATHY
     Route: 042
     Dates: start: 20130409, end: 20130409

REACTIONS (1)
  - Rash generalised [None]
